FAERS Safety Report 6014662-9 (Version None)
Quarter: 2008Q4

REPORT INFORMATION
  Report Type: 
  Country: None (occurrence: None)
  Receive Date: 20081219
  Receipt Date: 20081024
  Transmission Date: 20090506
  Serious: No
  Sender: FDA-Public Use
  Company Number: A0753511A

PATIENT
  Age: 73 Year
  Sex: Male

DRUGS (10)
  1. AVODART [Suspect]
     Indication: BENIGN PROSTATIC HYPERPLASIA
     Dosage: .5MG PER DAY
     Route: 048
     Dates: start: 20070101
  2. BETAPACE [Concomitant]
  3. LASIX [Concomitant]
  4. UROXATRAL [Concomitant]
  5. TYLENOL (CAPLET) [Concomitant]
  6. LISINOPRIL [Concomitant]
  7. COENZYME Q10 [Concomitant]
  8. PROTEGRA [Concomitant]
  9. FISH OIL [Concomitant]
  10. ANTACID TAB [Concomitant]

REACTIONS (3)
  - DYSPEPSIA [None]
  - DYSPNOEA [None]
  - FLATULENCE [None]
